FAERS Safety Report 7466864-2 (Version None)
Quarter: 2011Q2

REPORT INFORMATION
  Report Type: 
  Country: None (occurrence: None)
  Receive Date: 20110509
  Receipt Date: 20100907
  Transmission Date: 20111010
  Serious: No
  Sender: FDA-Public Use
  Company Number: US-ALEXION-A201001134

PATIENT
  Sex: Female

DRUGS (6)
  1. VITAMIN A [Concomitant]
     Dosage: UNK
     Route: 048
  2. FOLIC ACID [Concomitant]
     Dosage: UNK
     Route: 048
  3. VITAMIN B12                        /00056201/ [Concomitant]
     Dosage: UNK
     Route: 048
  4. SOLIRIS [Suspect]
     Indication: PAROXYSMAL NOCTURNAL HAEMOGLOBINURIA
     Dosage: 900 MG, Q2W
     Route: 042
     Dates: start: 20080506
  5. PLAVIX [Suspect]
     Indication: CORONARY ARTERY DISEASE
     Dosage: UNK
     Route: 048
  6. VITAMIN B COMPLEX                  /00003501/ [Concomitant]
     Dosage: UNK
     Route: 048

REACTIONS (3)
  - BURNING SENSATION [None]
  - URINARY TRACT INFECTION [None]
  - COUGH [None]
